FAERS Safety Report 23724199 (Version 1)
Quarter: 2024Q2

REPORT INFORMATION
  Report Type: Report from Study
  Country: FR (occurrence: FR)
  Receive Date: 20240409
  Receipt Date: 20240409
  Transmission Date: 20240716
  Serious: Yes (Other)
  Sender: FDA-Public Use
  Company Number: FR-MIRATI-MT2024PM06133

PATIENT
  Age: 63 Year
  Sex: Male

DRUGS (5)
  1. KRAZATI [Suspect]
     Active Substance: ADAGRASIB
     Indication: Non-small cell lung cancer
     Dosage: 600 MG, BID
     Route: 048
     Dates: start: 20231213
  2. KRAZATI [Suspect]
     Active Substance: ADAGRASIB
     Indication: Bronchial carcinoma
     Dosage: 400 MG, BID
     Route: 048
     Dates: start: 20240108
  3. OXYCODONE HYDROCHLORIDE [Suspect]
     Active Substance: OXYCODONE HYDROCHLORIDE
     Indication: Pain
     Dosage: UNK
     Route: 048
     Dates: start: 20231102
  4. APREMILAST [Concomitant]
     Active Substance: APREMILAST
     Dosage: 30 MG, BID
     Route: 048
     Dates: start: 20230925
  5. BIMATOPROST\TIMOLOL [Concomitant]
     Active Substance: BIMATOPROST\TIMOLOL
     Dosage: STARTED BEFORE 2023
     Route: 047

REACTIONS (4)
  - Nausea [Recovering/Resolving]
  - Vomiting [Recovering/Resolving]
  - Weight decreased [Recovering/Resolving]
  - Decreased appetite [Unknown]

NARRATIVE: CASE EVENT DATE: 20231215
